FAERS Safety Report 4378799-2 (Version None)
Quarter: 2004Q2

REPORT INFORMATION
  Report Type: 
  Country: None (occurrence: None)
  Receive Date: 20040609
  Receipt Date: 20040527
  Transmission Date: 20050107
  Serious: Yes (Hospitalization, Other)
  Sender: FDA-Public Use
  Company Number: 2004036161

PATIENT
  Sex: Female
  Weight: 56.6996 kg

DRUGS (5)
  1. GEODON [Suspect]
     Indication: BIPOLAR DISORDER
     Dosage: 40 MG (20 MG, 2 IN 1 D)
     Dates: start: 20040401
  2. OXCARBAZEPINE (OXCARBAZEPINE) [Suspect]
     Indication: ILL-DEFINED DISORDER
     Dosage: ORAL
     Route: 048
     Dates: end: 20040401
  3. VALPROATE SODIUM [Concomitant]
  4. FAMOTIDINE [Concomitant]
  5. RANITIDINE [Concomitant]

REACTIONS (9)
  - AGITATION [None]
  - DEPRESSED LEVEL OF CONSCIOUSNESS [None]
  - DRUG LEVEL DECREASED [None]
  - DRUG TOXICITY [None]
  - FATIGUE [None]
  - INSOMNIA [None]
  - PSYCHOTIC DISORDER [None]
  - SOMNOLENCE [None]
  - VOMITING [None]
